FAERS Safety Report 23234095 (Version 1)
Quarter: 2023Q4

REPORT INFORMATION
  Report Type: Spontaneous
  Country: BR (occurrence: None)
  Receive Date: 20231128
  Receipt Date: 20231128
  Transmission Date: 20240110
  Serious: Yes (Hospitalization, Other)
  Sender: FDA-Public Use
  Company Number: 2023A269157

PATIENT
  Age: 56 Year
  Sex: Female

DRUGS (4)
  1. OLAPARIB [Suspect]
     Active Substance: OLAPARIB
     Indication: Ovarian cancer stage III
     Dosage: 300 MG, BID
     Route: 048
     Dates: start: 202104
  2. OLAPARIB [Suspect]
     Active Substance: OLAPARIB
     Indication: Ovarian cancer stage III
     Dosage: 500 MG, QD
     Route: 048
     Dates: start: 202106
  3. OLAPARIB [Suspect]
     Active Substance: OLAPARIB
     Indication: Ovarian cancer stage III
     Dosage: 400 MG, QD
     Route: 048
     Dates: start: 202211
  4. AVASTIN [Concomitant]
     Active Substance: BEVACIZUMAB
     Indication: Ovarian cancer stage III
     Dosage: 15 MILLIGRAM/KILOGRAM, CYCLICAL
     Dates: start: 2020

REACTIONS (4)
  - Haemoglobin abnormal [Unknown]
  - Myalgia [Unknown]
  - Haematology test abnormal [Unknown]
  - Nausea [Unknown]

NARRATIVE: CASE EVENT DATE: 20210501
